FAERS Safety Report 11814325 (Version 1)
Quarter: 2015Q4

REPORT INFORMATION
  Report Type: Spontaneous
  Country: US (occurrence: US)
  Receive Date: 20151209
  Receipt Date: 20151209
  Transmission Date: 20160305
  Serious: Yes (Hospitalization)
  Sender: FDA-Public Use
  Company Number: US-JNJFOC-20151202709

PATIENT

DRUGS (1)
  1. RISPERIDONE. [Suspect]
     Active Substance: RISPERIDONE
     Indication: BIPOLAR I DISORDER
     Dosage: 4-6 MG
     Route: 065

REACTIONS (7)
  - Galactorrhoea [Unknown]
  - Hospitalisation [Unknown]
  - Suicidal ideation [Unknown]
  - Weight increased [Unknown]
  - Drug ineffective [Unknown]
  - Treatment noncompliance [Unknown]
  - Adverse drug reaction [Unknown]
